FAERS Safety Report 19523562 (Version 2)
Quarter: 2021Q3

REPORT INFORMATION
  Report Type: Spontaneous
  Country: US (occurrence: US)
  Receive Date: 20210712
  Receipt Date: 20210719
  Transmission Date: 20211014
  Serious: Yes (Other)
  Sender: FDA-Public Use
  Company Number: US-PFIZER INC-2021821583

PATIENT

DRUGS (3)
  1. PREMARIN [Suspect]
     Active Substance: ESTROGENS, CONJUGATED
  2. PREMARIN [Suspect]
     Active Substance: ESTROGENS, CONJUGATED
  3. ESTRACE [Suspect]
     Active Substance: ESTRADIOL

REACTIONS (2)
  - Breast cancer [Unknown]
  - Breast tenderness [Unknown]
